FAERS Safety Report 10204995 (Version 1)
Quarter: 2014Q2

REPORT INFORMATION
  Report Type: Spontaneous
  Country: US (occurrence: None)
  Receive Date: 20140527
  Receipt Date: 20140527
  Transmission Date: 20141212
  Serious: No
  Sender: FDA-Public Use
  Company Number: None

PATIENT
  Age: 58 Year
  Sex: Female
  Weight: 83.92 kg

DRUGS (1)
  1. ARICEPT [Suspect]
     Indication: MEMORY IMPAIRMENT
     Route: 048
     Dates: start: 2012

REACTIONS (6)
  - Overdose [None]
  - Feeling abnormal [None]
  - Drug interaction [None]
  - Drug ineffective [None]
  - Abnormal dreams [None]
  - Hypersomnia [None]
